FAERS Safety Report 9536570 (Version 1)
Quarter: 2013Q2

REPORT INFORMATION
  Report Type: Spontaneous
  Country: US (occurrence: None)
  Receive Date: 20130506
  Receipt Date: 20130506
  Transmission Date: 20140414
  Serious: Yes (Hospitalization, Other)
  Sender: FDA-Public Use
  Company Number: 7142480

PATIENT
  Age: 12 Year
  Sex: Male
  Weight: 32 kg

DRUGS (5)
  1. SAIZEN [Suspect]
     Indication: DWARFISM
     Dates: start: 200806, end: 20110131
  2. SAIZEN [Suspect]
     Indication: BODY HEIGHT BELOW NORMAL
     Dates: start: 200806, end: 20110131
  3. CYPROHEPTADINE [Concomitant]
  4. XOPENEX (LEVOSALBUTAMOL) [Concomitant]
  5. PULMICORT (BUDESONIDE) [Concomitant]

REACTIONS (8)
  - Pneumonia staphylococcal [None]
  - Influenza [None]
  - Respiratory failure [None]
  - Bronchiectasis [None]
  - Abdominal pain upper [None]
  - Gastrooesophageal reflux disease [None]
  - Vomiting [None]
  - Nausea [None]
